FAERS Safety Report 15523937 (Version 1)
Quarter: 2018Q4

REPORT INFORMATION
  Report Type: Spontaneous
  Country: US (occurrence: US)
  Receive Date: 20181015
  Receipt Date: 20181015
  Transmission Date: 20190205
  Serious: No
  Sender: FDA-Public Use
  Company Number: None

PATIENT
  Age: 48 Year
  Sex: Female

DRUGS (2)
  1. VITAMIN D3 [Concomitant]
     Active Substance: CHOLECALCIFEROL
  2. COPAXONE [Suspect]
     Active Substance: GLATIRAMER ACETATE
     Indication: MULTIPLE SCLEROSIS
     Dates: start: 20180921

REACTIONS (6)
  - Cold sweat [None]
  - Ear pain [None]
  - Hypoaesthesia [None]
  - Headache [None]
  - Burning sensation [None]
  - Ear discomfort [None]

NARRATIVE: CASE EVENT DATE: 20180926
